FAERS Safety Report 7466004-X (Version None)
Quarter: 2011Q2

REPORT INFORMATION
  Report Type: 
  Country: None (occurrence: None)
  Receive Date: 20110509
  Receipt Date: 20100527
  Transmission Date: 20111010
  Serious: No
  Sender: FDA-Public Use
  Company Number: US-ALEXION-A201000610

PATIENT
  Sex: Female

DRUGS (4)
  1. POTASSIUM CHLORIDE [Concomitant]
     Dosage: 20 MEQ, QD
     Route: 048
  2. SOLIRIS [Suspect]
     Indication: PAROXYSMAL NOCTURNAL HAEMOGLOBINURIA
     Dosage: 600 MG, QWKX4
     Route: 042
     Dates: start: 20090403, end: 20090401
  3. SOLIRIS [Suspect]
     Dosage: 900 MG, UNK
     Route: 042
     Dates: start: 20090501
  4. VITAMIN B-12 [Concomitant]
     Dosage: 1000 UG, QMONTH
     Route: 051

REACTIONS (2)
  - NASOPHARYNGITIS [None]
  - ANAEMIA [None]
